FAERS Safety Report 8543943-X (Version None)
Quarter: 2012Q3

REPORT INFORMATION
  Report Type: 
  Country: None (occurrence: None)
  Receive Date: 20120727
  Receipt Date: 20120719
  Transmission Date: 20120928
  Serious: Yes (Other)
  Sender: FDA-Public Use
  Company Number: GB-UCBSA-062293

PATIENT
  Age: 74 Year
  Sex: Female

DRUGS (3)
  1. RAMIPRIL [Concomitant]
  2. BENDROFLUMETHIAZIDE [Concomitant]
  3. ACETAMINOPHEN AND CODEINE PHOSPHATE [Suspect]
     Indication: NECK PAIN
     Route: 048

REACTIONS (4)
  - TREMOR [None]
  - PARAESTHESIA [None]
  - DYSPNOEA [None]
  - VOMITING [None]
